FAERS Safety Report 6697315-3 (Version None)
Quarter: 2010Q2

REPORT INFORMATION
  Report Type: 
  Country: None (occurrence: None)
  Receive Date: 20100426
  Receipt Date: 20100419
  Transmission Date: 20101027
  Serious: Yes (Hospitalization)
  Sender: FDA-Public Use
  Company Number: FR-CEPHALON-2009011941

PATIENT
  Sex: Male

DRUGS (3)
  1. MODAFINIL [Suspect]
     Indication: HYPERSOMNIA
     Route: 048
     Dates: start: 20090929, end: 20090929
  2. MODAFINIL [Suspect]
     Route: 048
     Dates: start: 20050101, end: 20090401
  3. ACETAMINOPHEN [Concomitant]
     Dates: start: 20090928, end: 20090929

REACTIONS (1)
  - CONVULSION [None]
